FAERS Safety Report 10883936 (Version 2)
Quarter: 2015Q1

REPORT INFORMATION
  Report Type: Report from Study
  Country: US (occurrence: US)
  Receive Date: 20150304
  Receipt Date: 20150327
  Transmission Date: 20150721
  Serious: Yes (Hospitalization)
  Sender: FDA-Public Use
  Company Number: US-BRISTOL-MYERS SQUIBB COMPANY-BMS-2015-002743

PATIENT
  Age: 46 Year
  Sex: Male

DRUGS (2)
  1. NIVOLUMAB [Suspect]
     Active Substance: NIVOLUMAB
     Indication: METASTATIC MALIGNANT MELANOMA
     Dosage: 3 MG/KG, INTERMITTENT
     Route: 042
     Dates: start: 20141112, end: 20141222
  2. IPILIMUMAB [Suspect]
     Active Substance: IPILIMUMAB
     Indication: METASTATIC MALIGNANT MELANOMA
     Dosage: 1 MG/KG, UNK
     Route: 042
     Dates: start: 20141112, end: 20141222

REACTIONS (8)
  - Uveitis [Recovering/Resolving]
  - Adrenal insufficiency [Unknown]
  - Gastritis [Unknown]
  - Diarrhoea [Recovering/Resolving]
  - Nephritis [Unknown]
  - Headache [Recovering/Resolving]
  - Rash maculo-papular [Recovering/Resolving]
  - Pyrexia [Unknown]

NARRATIVE: CASE EVENT DATE: 20150107
